FAERS Safety Report 13456482 (Version 1)
Quarter: 2017Q2

REPORT INFORMATION
  Report Type: Spontaneous
  Country: US (occurrence: US)
  Receive Date: 20170419
  Receipt Date: 20170419
  Transmission Date: 20170830
  Serious: No
  Sender: FDA-Public Use
  Company Number: None

PATIENT
  Age: 91 Year
  Sex: Female
  Weight: 54.43 kg

DRUGS (1)
  1. FLUOROURACIL 5% CRE SPE GENERIC FOR EFUDEX 5% CRE [Suspect]
     Active Substance: FLUOROURACIL
     Indication: SKIN DISORDER
     Route: 061
     Dates: start: 20170207, end: 20170208

REACTIONS (7)
  - Back pain [None]
  - Skin discolouration [None]
  - Eye swelling [None]
  - Swelling face [None]
  - Asthenia [None]
  - Joint swelling [None]
  - Abdominal pain [None]

NARRATIVE: CASE EVENT DATE: 20170207
